FAERS Safety Report 7806240-3 (Version None)
Quarter: 2011Q4

REPORT INFORMATION
  Report Type: 
  Country: None (occurrence: None)
  Receive Date: 20111011
  Receipt Date: 20110926
  Transmission Date: 20120403
  Serious: Yes (Other)
  Sender: FDA-Public Use
  Company Number: US-TYCO HEALTHCARE/MALLINCKRODT-T201101126

PATIENT
  Age: 72 Year
  Sex: Male

DRUGS (1)
  1. OPTIRAY 160 [Suspect]
     Indication: COMPUTERISED TOMOGRAM
     Dosage: MEAN DOSE 111 +/- 24 ML, SINGLE

REACTIONS (1)
  - NEPHROPATHY TOXIC [None]
